FAERS Safety Report 4370940-0 (Version None)
Quarter: 2004Q2

REPORT INFORMATION
  Report Type: 
  Country: None (occurrence: None)
  Receive Date: 20040601
  Receipt Date: 20040519
  Transmission Date: 20050107
  Serious: Yes (Death)
  Sender: FDA-Public Use
  Company Number: PERI00204001455

PATIENT
  Age: 82 Year
  Sex: Female

DRUGS (18)
  1. COVERSYL (PERINDOPRIL) [Suspect]
     Indication: ILL-DEFINED DISORDER
     Dosage: 4 MG QD PO
     Route: 048
     Dates: end: 20040413
  2. IOMERON-150 [Suspect]
     Indication: ILL-DEFINED DISORDER
     Dosage: 1 DF QD IV
     Route: 042
     Dates: start: 20040407, end: 20040407
  3. DIGOXIN [Concomitant]
  4. VECTARION (ALMITRINE DIMESILATE) [Concomitant]
  5. ALDACTONE [Concomitant]
  6. TRINIPATCH (GLYCERYL TRINITRATE) [Concomitant]
  7. PRAVASTATIN SODIUM [Concomitant]
  8. FONZYLANE (BUFLOMEDIL HYDROCHLORIDE) [Concomitant]
  9. LASIX [Concomitant]
  10. OMEPRAZOLE [Concomitant]
  11. LORAZEPAM [Concomitant]
  12. XANAX [Concomitant]
  13. CETORNAN (ORNITHINE OXOGLURATE) [Concomitant]
  14. CALCI (CALCITONIN, SALMON) [Concomitant]
  15. TRAMADOL HCL [Concomitant]
  16. ACETAMINOPHEN [Concomitant]
  17. SERETIDE [Concomitant]
  18. BRONCHODUAL [Concomitant]

REACTIONS (6)
  - ACUTE PULMONARY OEDEMA [None]
  - ARTERITIS [None]
  - BRONCHIAL INFECTION [None]
  - MULTI-ORGAN FAILURE [None]
  - RENAL FAILURE ACUTE [None]
  - TUBULOINTERSTITIAL NEPHRITIS [None]
